FAERS Safety Report 25181260 (Version 1)
Quarter: 2025Q2

REPORT INFORMATION
  Report Type: Report from Study
  Country: CA (occurrence: CA)
  Receive Date: 20250410
  Receipt Date: 20250410
  Transmission Date: 20250717
  Serious: Yes (Other)
  Sender: CELLTRION
  Company Number: CA-CELLTRION INC.-2025CA010173

PATIENT

DRUGS (5)
  1. RITUXIMAB [Suspect]
     Active Substance: RITUXIMAB
     Indication: Rheumatoid arthritis
     Route: 041
  2. CALCIUM [Concomitant]
     Active Substance: CALCIUM
  3. ERGOCALCIFEROL [Concomitant]
     Active Substance: ERGOCALCIFEROL
  4. FLAX OIL [Concomitant]
  5. PREDNISONE [Concomitant]
     Active Substance: PREDNISONE

REACTIONS (4)
  - Thyroid disorder [Unknown]
  - Macular degeneration [Unknown]
  - Renal impairment [Unknown]
  - Osteoarthritis [Unknown]
